FAERS Safety Report 8096626-7 (Version None)
Quarter: 2012Q1

REPORT INFORMATION
  Report Type: 
  Country: None (occurrence: None)
  Receive Date: 20120126
  Receipt Date: 20120113
  Transmission Date: 20120608
  Serious: Yes (Other)
  Sender: FDA-Public Use
  Company Number: JP-2012-10256

PATIENT
  Age: 85 Year
  Sex: Female

DRUGS (9)
  1. METOPROLOL TARTRATE [Concomitant]
  2. ISOSORBIDE DINITRATE [Concomitant]
  3. SIGMART (NICORANDIL) [Concomitant]
  4. NITRAZEPAM [Concomitant]
  5. LASIX [Concomitant]
  6. SAMSCA [Suspect]
     Indication: CARDIAC FAILURE
     Dosage: 7.5 MG MILLIGRAM(S), QD, ORAL; 15 MG MILLIGRAM(S), QD, ORAL
     Route: 048
     Dates: start: 20111218, end: 20120102
  7. SAMSCA [Suspect]
     Indication: CARDIAC FAILURE
     Dosage: 7.5 MG MILLIGRAM(S), QD, ORAL; 15 MG MILLIGRAM(S), QD, ORAL
     Route: 048
     Dates: start: 20111216, end: 20111217
  8. CELECOXIB [Concomitant]
  9. DEPAS (ETIZOLAM) [Concomitant]

REACTIONS (2)
  - RASH [None]
  - PANCYTOPENIA [None]
